FAERS Safety Report 9310952 (Version 1)
Quarter: 2013Q2

REPORT INFORMATION
  Report Type: Spontaneous
  Country: US (occurrence: FR)
  Receive Date: 20130528
  Receipt Date: 20130528
  Transmission Date: 20140414
  Serious: Yes (Other)
  Sender: FDA-Public Use
  Company Number: 2013SP004391

PATIENT
  Age: 2 Year
  Sex: Male

DRUGS (4)
  1. PIPERACILLIN/TAZOBACTAM [Suspect]
     Indication: FEBRILE NEUTROPENIA
  2. FLUCONAZOLE [Suspect]
     Indication: FEBRILE NEUTROPENIA
  3. TRIMETHOPRIM SULFAMETHOXAZOLE [Suspect]
     Indication: FEBRILE NEUTROPENIA
     Route: 048
  4. AMIKACIN [Suspect]
     Indication: FEBRILE NEUTROPENIA

REACTIONS (3)
  - Pathogen resistance [Unknown]
  - Febrile neutropenia [Recovered/Resolved]
  - Mucosal inflammation [Unknown]
